FAERS Safety Report 13005954 (Version 1)
Quarter: 2016Q4

REPORT INFORMATION
  Report Type: Spontaneous
  Country: US (occurrence: US)
  Receive Date: 20161207
  Receipt Date: 20161207
  Transmission Date: 20170207
  Serious: No
  Sender: FDA-Public Use
  Company Number: US-CELGENEUS-USA-2016117615

PATIENT
  Age: 47 Year
  Sex: Male

DRUGS (1)
  1. OTEZLA [Suspect]
     Active Substance: APREMILAST
     Indication: PSORIASIS
     Dosage: 60 MG
     Route: 048
     Dates: start: 20160929

REACTIONS (6)
  - Nausea [Unknown]
  - Apathy [Unknown]
  - Diarrhoea [Unknown]
  - Depression [Unknown]
  - Headache [Unknown]
  - Night sweats [Unknown]

NARRATIVE: CASE EVENT DATE: 20160929
